FAERS Safety Report 17048788 (Version 1)
Quarter: 2019Q4

REPORT INFORMATION
  Report Type: Spontaneous
  Country: SI (occurrence: SI)
  Receive Date: 20191119
  Receipt Date: 20191119
  Transmission Date: 20200122
  Serious: Yes (Hospitalization, Other)
  Sender: FDA-Public Use
  Company Number: SI-ACTELION-A-CH2019-198108

PATIENT
  Age: 19 Year
  Sex: Male

DRUGS (3)
  1. SILDENAFIL. [Concomitant]
     Active Substance: SILDENAFIL
     Indication: PULMONARY HYPERTENSION
  2. TREPROSTINIL. [Concomitant]
     Active Substance: TREPROSTINIL
     Indication: PULMONARY HYPERTENSION
  3. BOSENTAN. [Suspect]
     Active Substance: BOSENTAN
     Indication: PULMONARY ARTERIAL HYPERTENSION
     Dosage: UNK
     Route: 048

REACTIONS (10)
  - Focal segmental glomerulosclerosis [Unknown]
  - Haemodialysis [Unknown]
  - Condition aggravated [Recovered/Resolved]
  - Shock haemorrhagic [Unknown]
  - Disease progression [Unknown]
  - Lung transplant [Unknown]
  - Chronic kidney disease [Unknown]
  - Pulmonary arterial hypertension [Recovered/Resolved]
  - Renal ischaemia [Unknown]
  - Renal transplant [Unknown]
